FAERS Safety Report 9212933 (Version 2)
Quarter: 2013Q3

REPORT INFORMATION
  Report Type: Spontaneous
  Country: NL (occurrence: NL)
  Receive Date: 20130405
  Receipt Date: 20130823
  Transmission Date: 20140515
  Serious: Yes (Hospitalization, Other)
  Sender: FDA-Public Use
  Company Number: NL-JNJFOC-20130317211

PATIENT
  Age: 34 Year
  Sex: Female
  Weight: 57 kg

DRUGS (4)
  1. REMICADE [Suspect]
     Indication: COLITIS ULCERATIVE
     Route: 042
     Dates: start: 20130207
  2. REMICADE [Suspect]
     Indication: COLITIS ULCERATIVE
     Route: 042
  3. REMICADE [Suspect]
     Indication: COLITIS ULCERATIVE
     Route: 042
     Dates: start: 20120402, end: 20130207
  4. PURINETHOL [Concomitant]
     Route: 048
     Dates: start: 20120402

REACTIONS (2)
  - Lymphadenopathy [Recovered/Resolved]
  - Accidental overdose [Recovered/Resolved]
